FAERS Safety Report 14957022 (Version 6)
Quarter: 2018Q4

REPORT INFORMATION
  Report Type: Report from Study
  Country: None (occurrence: SE)
  Receive Date: 20180531
  Receipt Date: 20181023
  Transmission Date: 20190204
  Serious: Yes (Hospitalization)
  Sender: FDA-Public Use
  Company Number: SE-ABBVIE-18K-150-2371698-00

PATIENT
  Sex: Female
  Weight: 65 kg

DRUGS (3)
  1. DUODOPA [Suspect]
     Active Substance: CARBIDOPA\LEVODOPA
     Indication: PARKINSON^S DISEASE
     Route: 050
     Dates: start: 20101201
  2. DUODOPA [Suspect]
     Active Substance: CARBIDOPA\LEVODOPA
     Route: 050
     Dates: start: 20110301
  3. SIFROL [Concomitant]
     Active Substance: PRAMIPEXOLE
     Indication: PARKINSON^S DISEASE
     Dates: start: 20180605

REACTIONS (10)
  - Sepsis [Not Recovered/Not Resolved]
  - Arthritis infective [Not Recovered/Not Resolved]
  - Stoma site extravasation [Not Recovered/Not Resolved]
  - Infection [Unknown]
  - Stoma site infection [Not Recovered/Not Resolved]
  - Cardiac arrest [Unknown]
  - General physical health deterioration [Not Recovered/Not Resolved]
  - Stoma site erythema [Not Recovered/Not Resolved]
  - Musculoskeletal discomfort [Not Recovered/Not Resolved]
  - Staphylococcal infection [Unknown]

NARRATIVE: CASE EVENT DATE: 2018
